FAERS Safety Report 8939941 (Version 2)
Quarter: 2012Q4

REPORT INFORMATION
  Report Type: 
  Country: US (occurrence: US)
  Receive Date: 20121201
  Receipt Date: 20121227
  Transmission Date: 20130627
  Serious: Yes (Hospitalization)
  Sender: FDA-Public Use
  Company Number: US-009507513-1211USA011635

PATIENT
  Age: 63 Year
  Sex: Male

DRUGS (2)
  1. BETAMETHASONE SODIUM PHOSPHATE [Suspect]
     Indication: BACK PAIN
     Dosage: 2 ml (6 mg/ml), Once
     Route: 008
  2. LIDOCAINE [Suspect]
     Indication: BACK PAIN
     Dosage: 1 ml, Once
     Route: 008

REACTIONS (1)
  - Paralysis [Unknown]
